FAERS Safety Report 18095689 (Version 1)
Quarter: 2020Q3

REPORT INFORMATION
  Report Type: Spontaneous
  Country: GB (occurrence: GB)
  Receive Date: 20200730
  Receipt Date: 20200730
  Transmission Date: 20201103
  Serious: Yes (Other)
  Sender: FDA-Public Use
  Company Number: GB-ASTRAZENECA-2020SE92545

PATIENT
  Age: 76 Year
  Sex: Male
  Weight: 73 kg

DRUGS (5)
  1. ATORVASTATIN [Concomitant]
     Active Substance: ATORVASTATIN
     Dosage: ONE IDEALLY WITH EVENING MEAL, OR AT NIGHT, OR
     Dates: start: 20191115
  2. CLOPIDOGREL [Concomitant]
     Active Substance: CLOPIDOGREL BISULFATE
     Route: 065
     Dates: start: 20200131
  3. MACROGOL [Concomitant]
     Active Substance: POLYETHYLENE GLYCOLS
     Dosage: TAKE HALF OR ONE A DAY
     Dates: start: 20191115
  4. LATANOPROST. [Concomitant]
     Active Substance: LATANOPROST
     Dosage: 2 DROPS DAILY AT NIGHT
     Dates: start: 20191115
  5. OMEPRAZOLE. [Suspect]
     Active Substance: OMEPRAZOLE
     Dosage: 20.0MG UNKNOWN
     Route: 048
     Dates: start: 20200709

REACTIONS (1)
  - Nephritis [Recovering/Resolving]

NARRATIVE: CASE EVENT DATE: 20200709
